FAERS Safety Report 20553509 (Version 7)
Quarter: 2022Q2

REPORT INFORMATION
  Report Type: Other
  Country: US (occurrence: US)
  Receive Date: 20220304
  Receipt Date: 20220627
  Transmission Date: 20220721
  Serious: Yes (Hospitalization, Other)
  Sender: FDA-Public Use
  Company Number: US-BIOVITRUM-2022US02473

PATIENT
  Age: 49 Year
  Sex: Female

DRUGS (17)
  1. KINERET [Suspect]
     Active Substance: ANAKINRA
     Indication: Complex regional pain syndrome
     Route: 058
     Dates: start: 20220212
  2. LAMOTRIGINE [Suspect]
     Active Substance: LAMOTRIGINE
     Indication: Product used for unknown indication
     Route: 065
  3. ARICEPT [Concomitant]
     Active Substance: DONEPEZIL HYDROCHLORIDE
  4. TYLENOL [Concomitant]
     Active Substance: ACETAMINOPHEN
  5. RAMELTEON [Concomitant]
     Active Substance: RAMELTEON
  6. ALPRAZOLAM [Concomitant]
     Active Substance: ALPRAZOLAM
  7. VITAMINS [Concomitant]
     Active Substance: VITAMINS
  8. TOPAMAX [Concomitant]
     Active Substance: TOPIRAMATE
  9. .ALPHA.-LIPOIC ACID [Concomitant]
     Active Substance: .ALPHA.-LIPOIC ACID
  10. ZOLPIDEM [Concomitant]
     Active Substance: ZOLPIDEM TARTRATE
  11. MESTINON [Concomitant]
     Active Substance: PYRIDOSTIGMINE BROMIDE
  12. L-SERINE [Concomitant]
  13. BACLOFEN [Concomitant]
     Active Substance: BACLOFEN
  14. NALTREXONE [Concomitant]
     Active Substance: NALTREXONE
  15. VITAMIN D2 [Concomitant]
     Active Substance: ERGOCALCIFEROL
  16. COENZYME Q10 [Concomitant]
     Active Substance: DIETARY SUPPLEMENT\UBIDECARENONE
  17. LUTEOLIN [Concomitant]

REACTIONS (19)
  - Tachycardia [Unknown]
  - Injection site rash [Recovering/Resolving]
  - Injection site erythema [Recovering/Resolving]
  - Encephalitis autoimmune [Unknown]
  - Diarrhoea [Unknown]
  - Dysuria [Unknown]
  - Pyrexia [Unknown]
  - Pain [Recovered/Resolved]
  - Dehydration [Unknown]
  - Blood pressure increased [Unknown]
  - Depression [Unknown]
  - Pain in extremity [Unknown]
  - Injection site inflammation [Unknown]
  - Hypersensitivity [Unknown]
  - Rash [Unknown]
  - Injection site bruising [Unknown]
  - Injection site pain [Unknown]
  - Off label use [Not Recovered/Not Resolved]
  - Product dose omission issue [Unknown]

NARRATIVE: CASE EVENT DATE: 20220212
